FAERS Safety Report 22301819 (Version 1)
Quarter: 2023Q2

REPORT INFORMATION
  Report Type: Spontaneous
  Country: US (occurrence: None)
  Receive Date: 20230510
  Receipt Date: 20230510
  Transmission Date: 20230721
  Serious: Yes (Other)
  Sender: FDA-Public Use
  Company Number: 2023A103796

PATIENT

DRUGS (1)
  1. BYDUREON BCISE [Suspect]
     Active Substance: EXENATIDE
     Route: 058

REACTIONS (8)
  - Blood glucose abnormal [Unknown]
  - Road traffic accident [Unknown]
  - Injury [Unknown]
  - Tremor [Unknown]
  - Fear [Unknown]
  - Decreased activity [Unknown]
  - Injection site bruising [Unknown]
  - Product storage error [Unknown]
